FAERS Safety Report 9029891 (Version 2)
Quarter: 2013Q1

REPORT INFORMATION
  Report Type: Spontaneous
  Country: CA (occurrence: CA)
  Receive Date: 20130124
  Receipt Date: 20130324
  Transmission Date: 20140127
  Serious: Yes (Hospitalization)
  Sender: FDA-Public Use
  Company Number: CA-ELI_LILLY_AND_COMPANY-CA201301004792

PATIENT
  Age: 47 Year
  Sex: Male

DRUGS (16)
  1. FORTEO [Suspect]
     Indication: OSTEOPOROSIS
     Dosage: 20 UG, QD
     Route: 058
     Dates: start: 20111215
  2. PREDNISONE [Concomitant]
     Dosage: UNK, UNKNOWN
     Route: 065
  3. METFORMIN [Concomitant]
     Dosage: UNK, UNKNOWN
     Route: 065
  4. CITALOPRAM [Concomitant]
     Dosage: UNK, UNKNOWN
     Route: 065
  5. IRON [Concomitant]
     Dosage: UNK, UNKNOWN
     Route: 065
  6. ESOMEPRAZOLE [Concomitant]
     Dosage: UNK, UNKNOWN
     Route: 065
  7. ZOPICLONE [Concomitant]
     Dosage: UNK, UNKNOWN
     Route: 065
  8. TEMAZEPAM [Concomitant]
     Dosage: UNK, UNKNOWN
     Route: 065
  9. AMITRIPTYLINE [Concomitant]
     Dosage: UNK, UNKNOWN
     Route: 065
  10. ENDOCET [Concomitant]
     Dosage: UNK, UNKNOWN
     Route: 065
  11. DEMEROL [Concomitant]
     Dosage: UNK, UNKNOWN
     Route: 065
  12. DILAUDID [Concomitant]
     Dosage: UNK, UNKNOWN
     Route: 065
  13. DAPSONE [Concomitant]
     Dosage: UNK, UNKNOWN
     Route: 065
  14. CORTISONE [Concomitant]
     Dosage: UNK, UNKNOWN
     Route: 065
  15. VITAMIN D [Concomitant]
     Dosage: UNK, UNKNOWN
     Route: 065
  16. CALCIUM [Concomitant]
     Dosage: UNK, UNKNOWN
     Route: 065

REACTIONS (1)
  - Pneumonia [Not Recovered/Not Resolved]
